FAERS Safety Report 17881078 (Version 5)
Quarter: 2021Q1

REPORT INFORMATION
  Report Type: Report from Study
  Country: US (occurrence: US)
  Receive Date: 20200610
  Receipt Date: 20210122
  Transmission Date: 20210419
  Serious: Yes (Other)
  Sender: FDA-Public Use
  Company Number: US-B.I. PHARMACEUTICALS,INC./RIDGEFIELD-2019-BI-034691

PATIENT
  Age: 68 Year
  Sex: Male

DRUGS (17)
  1. GILOTRIF [Suspect]
     Active Substance: AFATINIB
     Indication: LUNG NEOPLASM MALIGNANT
     Dosage: 30MG BY MOUTH DAILY
     Route: 048
     Dates: start: 20190813
  2. MECLIZINE HCL [Concomitant]
     Active Substance: MECLIZINE HYDROCHLORIDE
     Indication: PRODUCT USED FOR UNKNOWN INDICATION
  3. FISH OIL [Concomitant]
     Active Substance: FISH OIL
     Indication: PRODUCT USED FOR UNKNOWN INDICATION
  4. MELOXICAM. [Concomitant]
     Active Substance: MELOXICAM
     Indication: PAIN
  5. TAMSULOSIN HCL [Concomitant]
     Active Substance: TAMSULOSIN HYDROCHLORIDE
     Indication: PRODUCT USED FOR UNKNOWN INDICATION
  6. XANAX [Concomitant]
     Active Substance: ALPRAZOLAM
     Indication: PRODUCT USED FOR UNKNOWN INDICATION
  7. VIAGRA [Concomitant]
     Active Substance: SILDENAFIL CITRATE
     Indication: PRODUCT USED FOR UNKNOWN INDICATION
  8. SIMVASTATIN. [Concomitant]
     Active Substance: SIMVASTATIN
     Indication: PRODUCT USED FOR UNKNOWN INDICATION
  9. TRAMADOL. [Concomitant]
     Active Substance: TRAMADOL
     Indication: PAIN
  10. FLOMAX [MORNIFLUMATE] [Concomitant]
     Active Substance: MORNIFLUMATE
     Indication: PRODUCT USED FOR UNKNOWN INDICATION
  11. SIMETHICONE (DIMETHICONE) [Concomitant]
     Active Substance: DIMETHICONE
     Indication: PRODUCT USED FOR UNKNOWN INDICATION
  12. IMODIUM [Concomitant]
     Active Substance: LOPERAMIDE HYDROCHLORIDE
     Indication: PRODUCT USED FOR UNKNOWN INDICATION
     Route: 065
  13. TRIAMCINOLONE ACETONIDE. [Concomitant]
     Active Substance: TRIAMCINOLONE ACETONIDE
     Indication: PRODUCT USED FOR UNKNOWN INDICATION
  14. PEPTO?BISMOL [Concomitant]
     Active Substance: BISMUTH SUBSALICYLATE
     Indication: PRODUCT USED FOR UNKNOWN INDICATION
  15. LISINOPRIL. [Concomitant]
     Active Substance: LISINOPRIL
     Indication: PRODUCT USED FOR UNKNOWN INDICATION
  16. VITAMINS NOS [Concomitant]
     Active Substance: VITAMINS
     Indication: PRODUCT USED FOR UNKNOWN INDICATION
  17. DOXYCYCLINE. [Concomitant]
     Active Substance: DOXYCYCLINE
     Indication: PRODUCT USED FOR UNKNOWN INDICATION

REACTIONS (32)
  - Swollen tongue [Not Recovered/Not Resolved]
  - Pruritus [Unknown]
  - Dry mouth [Unknown]
  - Arthralgia [Not Recovered/Not Resolved]
  - Back pain [Unknown]
  - Hair colour changes [Unknown]
  - Nasal discomfort [Recovered/Resolved]
  - Influenza [Unknown]
  - Alopecia [Unknown]
  - Fatigue [Unknown]
  - White blood cell count increased [Recovered/Resolved]
  - Diarrhoea [Not Recovered/Not Resolved]
  - Taste disorder [Unknown]
  - Dry skin [Unknown]
  - Dry skin [Not Recovered/Not Resolved]
  - Diarrhoea [Unknown]
  - Glaucoma [Unknown]
  - Acne [Unknown]
  - Rash [Not Recovered/Not Resolved]
  - Onychoclasis [Unknown]
  - Nasopharyngitis [Not Recovered/Not Resolved]
  - Nail cuticle fissure [Not Recovered/Not Resolved]
  - Blue toe syndrome [Unknown]
  - Decreased appetite [Unknown]
  - Dry eye [Not Recovered/Not Resolved]
  - Stomatitis [Unknown]
  - Growth of eyelashes [Unknown]
  - Skin fissures [Unknown]
  - Hair texture abnormal [Unknown]
  - Dermatitis acneiform [Not Recovered/Not Resolved]
  - Myalgia [Not Recovered/Not Resolved]
  - Nail cuticle fissure [Unknown]

NARRATIVE: CASE EVENT DATE: 20190824
